FAERS Safety Report 5037484-4 (Version None)
Quarter: 2006Q2

REPORT INFORMATION
  Report Type: 
  Country: None (occurrence: None)
  Receive Date: 20060628
  Receipt Date: 20051128
  Transmission Date: 20061013
  Serious: Yes (Life-Threatening, Hospitalization, Disabling, Other)
  Sender: FDA-Public Use
  Company Number: BR-GLAXOSMITHKLINE-A0584518A

PATIENT
  Age: 45 Year
  Sex: Female
  Weight: 83 kg

DRUGS (5)
  1. AEROLIN [Suspect]
     Indication: ASTHMA
     Route: 055
     Dates: start: 19630101
  2. BEROTEC [Concomitant]
  3. AMINOPHYLLIN [Concomitant]
     Dosage: 2MG THREE TIMES PER DAY
     Dates: start: 20041201
  4. SALBUTAMOL [Concomitant]
     Indication: ASTHMATIC CRISIS
     Dates: start: 20041201
  5. HYPERTENSION MED [Concomitant]
     Indication: HYPERTENSION

REACTIONS (4)
  - ASTHMATIC CRISIS [None]
  - DRUG INEFFECTIVE [None]
  - PHARMACEUTICAL PRODUCT COMPLAINT [None]
  - TACHYCARDIA [None]
